FAERS Safety Report 18337765 (Version 3)
Quarter: 2021Q2

REPORT INFORMATION
  Report Type: Report from Study
  Country: US (occurrence: US)
  Receive Date: 20201002
  Receipt Date: 20210602
  Transmission Date: 20210717
  Serious: Yes (Other)
  Sender: FDA-Public Use
  Company Number: US-B.I. PHARMACEUTICALS,INC./RIDGEFIELD-2020-BI-050419

PATIENT
  Age: 73 Year
  Sex: Male

DRUGS (2)
  1. OFEV [Suspect]
     Active Substance: NINTEDANIB
     Indication: IDIOPATHIC PULMONARY FIBROSIS
     Dosage: 150MG BY MOUTH TWICE DAILY
     Route: 048
     Dates: start: 20200413
  2. XARELTO [Concomitant]
     Active Substance: RIVAROXABAN
     Indication: PRODUCT USED FOR UNKNOWN INDICATION
     Route: 065

REACTIONS (5)
  - Surgery [Unknown]
  - Diarrhoea [Recovering/Resolving]
  - Colon dysplasia [Not Recovered/Not Resolved]
  - Abdominal pain upper [Recovering/Resolving]
  - Large intestine polyp [Not Recovered/Not Resolved]

NARRATIVE: CASE EVENT DATE: 202007
